FAERS Safety Report 7480366 (Version 3)
Quarter: 2013Q3

REPORT INFORMATION
  Report Type: Spontaneous
  Country: CA (occurrence: CA)
  Receive Date: 20100716
  Receipt Date: 20130808
  Transmission Date: 20140515
  Serious: No
  Sender: FDA-Public Use
  Company Number: PHHY2009CA49421

PATIENT
  Sex: Female
  Weight: 108.84 kg

DRUGS (5)
  1. GLEEVEC [Suspect]
     Indication: CHRONIC MYELOID LEUKAEMIA
     Dosage: 600 MG, DAILY
     Route: 048
     Dates: start: 20070507, end: 20090730
  2. VITAMINS NOS [Concomitant]
     Dosage: UNK UKN, UNK
  3. FENTANYL [Concomitant]
     Dosage: UNK UKN, UNK
  4. ZOFRAN [Concomitant]
     Dosage: UNK UKN, UNK
  5. LIDOCAINE [Concomitant]
     Dosage: UNK UKN, UNK
     Route: 008

REACTIONS (1)
  - Maternal exposure during pregnancy [Unknown]
